FAERS Safety Report 5129063-5 (Version None)
Quarter: 2006Q4

REPORT INFORMATION
  Report Type: 
  Country: None (occurrence: None)
  Receive Date: 20061011
  Receipt Date: 20060922
  Transmission Date: 20070319
  Serious: Yes (Hospitalization)
  Sender: FDA-Public Use
  Company Number: US200609004734

PATIENT
  Age: 89 Year
  Sex: Female

DRUGS (6)
  1. FORTEO [Suspect]
     Indication: OSTEOPOROSIS
     Dates: start: 20050101, end: 20060412
  2. FORTEO [Suspect]
     Indication: OSTEOPOROSIS
     Dates: start: 20060919
  3. FORTEO [Concomitant]
  4. FORTEO [Concomitant]
  5. CALCIUM (CALCIUM) [Concomitant]
  6. VITAMIN D [Concomitant]

REACTIONS (6)
  - BALANCE DISORDER [None]
  - BLOOD CALCIUM INCREASED [None]
  - GAIT DISTURBANCE [None]
  - PAIN [None]
  - PHARMACEUTICAL PRODUCT COMPLAINT [None]
  - SPINAL FRACTURE [None]
